FAERS Safety Report 18103203 (Version 1)
Quarter: 2020Q3

REPORT INFORMATION
  Report Type: Spontaneous
  Country: GB (occurrence: GB)
  Receive Date: 20200803
  Receipt Date: 20200803
  Transmission Date: 20201103
  Serious: Yes (Other)
  Sender: FDA-Public Use
  Company Number: GB-JNJFOC-20200739349

PATIENT
  Age: 33 Year
  Sex: Male

DRUGS (4)
  1. ACETAZOLAMIDE. [Concomitant]
     Active Substance: ACETAZOLAMIDE
  2. BISOPROLOL [Concomitant]
     Active Substance: BISOPROLOL
  3. TOPAMAX [Suspect]
     Active Substance: TOPIRAMATE
     Indication: PRODUCT USED FOR UNKNOWN INDICATION
     Route: 048
     Dates: start: 202005
  4. PREGABALIN. [Concomitant]
     Active Substance: PREGABALIN

REACTIONS (6)
  - Personality change [Unknown]
  - Social avoidant behaviour [Not Recovered/Not Resolved]
  - Feeling of despair [Not Recovered/Not Resolved]
  - Irritability [Not Recovered/Not Resolved]
  - Communication disorder [Not Recovered/Not Resolved]
  - Anger [Not Recovered/Not Resolved]

NARRATIVE: CASE EVENT DATE: 202006
